FAERS Safety Report 4606967-0 (Version None)
Quarter: 2005Q1

REPORT INFORMATION
  Report Type: 
  Country: None (occurrence: None)
  Receive Date: 20050314
  Receipt Date: 20050302
  Transmission Date: 20050727
  Serious: Yes (Other)
  Sender: FDA-Public Use
  Company Number: DE-JNJFOC-20050300757

PATIENT
  Age: 52 Year
  Sex: Female

DRUGS (11)
  1. HALDOL [Suspect]
  2. HALDOL [Suspect]
     Indication: SCHIZOAFFECTIVE DISORDER
  3. ZYPREXA [Suspect]
  4. ZYPREXA [Suspect]
     Indication: DRUG USE FOR UNKNOWN INDICATION
     Dosage: START DATE: SINCE MONTHS
  5. TAVOR [Concomitant]
  6. TAVOR [Concomitant]
  7. TAVOR [Concomitant]
     Dosage: START DATE: SINCE WEEKS
  8. CLIMOPAX [Concomitant]
  9. CLIMOPAX [Concomitant]
     Dosage: 0.625/5MG  START DATE: SINCE MONTHS
  10. EUTHYROX [Concomitant]
     Dosage: START DATE: SINCE MONTHS
  11. FELIS [Concomitant]
     Dosage: START DATE: SINCE WEEKS

REACTIONS (2)
  - NEUROLEPTIC MALIGNANT SYNDROME [None]
  - PLEUROTHOTONUS [None]
